FAERS Safety Report 25786523 (Version 1)
Quarter: 2025Q3

REPORT INFORMATION
  Report Type: Spontaneous
  Country: US (occurrence: None)
  Receive Date: 20250909
  Receipt Date: 20250909
  Transmission Date: 20251020
  Serious: Yes (Hospitalization)
  Sender: FDA-CTU
  Company Number: None

PATIENT
  Age: 12 Year
  Sex: Male
  Weight: 28.35 kg

DRUGS (2)
  1. PALIPERIDONE [Suspect]
     Active Substance: PALIPERIDONE
     Route: 048
     Dates: start: 20250906, end: 20250908
  2. CLONIDINE [Concomitant]
     Active Substance: CLONIDINE

REACTIONS (6)
  - Priapism [None]
  - Dysarthria [None]
  - Agitation [None]
  - Retching [None]
  - Drooling [None]
  - Tongue disorder [None]

NARRATIVE: CASE EVENT DATE: 20250908
